FAERS Safety Report 5218462-9 (Version None)
Quarter: 2007Q1

REPORT INFORMATION
  Report Type: 
  Country: None (occurrence: None)
  Receive Date: 20070123
  Receipt Date: 20070123
  Transmission Date: 20070707
  Serious: Yes (Other)
  Sender: FDA-Public Use
  Company Number: None

PATIENT
  Age: 44 Year
  Sex: Female
  Weight: 68.0396 kg

DRUGS (1)
  1. ESTRADIOL [Suspect]
     Indication: HYSTERECTOMY
     Dosage: 0.06 MG/DAY ONE PATCH/WEEK DERMAL
     Route: 050
     Dates: start: 20061001, end: 20061101

REACTIONS (4)
  - EMOTIONAL DISTRESS [None]
  - HYPERHIDROSIS [None]
  - NAUSEA [None]
  - PHARMACEUTICAL PRODUCT COMPLAINT [None]
